FAERS Safety Report 9115780 (Version 1)
Quarter: 2013Q1

REPORT INFORMATION
  Report Type: Spontaneous
  Country: US (occurrence: None)
  Receive Date: 20130221
  Receipt Date: 20130221
  Transmission Date: 20140127
  Serious: Yes (Hospitalization)
  Sender: FDA-Public Use
  Company Number: None

PATIENT
  Age: 65 Year
  Sex: Male
  Weight: 147 kg

DRUGS (1)
  1. XARELTO 20 MG [Suspect]

REACTIONS (4)
  - Oedema [None]
  - Swelling [None]
  - Pruritus [None]
  - Urticaria [None]
